FAERS Safety Report 7972269-8 (Version None)
Quarter: 2011Q4

REPORT INFORMATION
  Report Type: 
  Country: None (occurrence: None)
  Receive Date: 20111213
  Receipt Date: 20111205
  Transmission Date: 20120403
  Serious: Yes (Hospitalization)
  Sender: FDA-Public Use
  Company Number: US-BIOGENIDEC-2011BI040603

PATIENT
  Age: 36 Year
  Sex: Male

DRUGS (1)
  1. TYSABRI [Suspect]
     Indication: MULTIPLE SCLEROSIS
     Route: 042
     Dates: start: 20110822, end: 20110822

REACTIONS (5)
  - ASTHENIA [None]
  - IRRITABILITY [None]
  - LETHARGY [None]
  - DYSARTHRIA [None]
  - GENERAL SYMPTOM [None]
